FAERS Safety Report 23591173 (Version 1)
Quarter: 2024Q1

REPORT INFORMATION
  Report Type: Spontaneous
  Country: US (occurrence: US)
  Receive Date: 20240304
  Receipt Date: 20240304
  Transmission Date: 20240410
  Serious: No
  Sender: FDA-Public Use
  Company Number: US-JNJFOC-20240270994

PATIENT
  Sex: Male

DRUGS (6)
  1. RISPERDAL CONSTA [Suspect]
     Active Substance: RISPERIDONE
     Indication: Schizophrenia
     Route: 065
     Dates: start: 2008, end: 201709
  2. RISPERDAL CONSTA [Suspect]
     Active Substance: RISPERIDONE
  3. RISPERDAL CONSTA [Suspect]
     Active Substance: RISPERIDONE
  4. RISPERDAL CONSTA [Suspect]
     Active Substance: RISPERIDONE
  5. RISPERDAL [Suspect]
     Active Substance: RISPERIDONE
     Indication: Schizophrenia
     Route: 065
     Dates: start: 2008, end: 201709
  6. HALOPERIDOL [Suspect]
     Active Substance: HALOPERIDOL
     Indication: Schizophrenia
     Route: 065

REACTIONS (8)
  - Psychotic disorder [Unknown]
  - Muscle spasms [Unknown]
  - Muscle twitching [Unknown]
  - Muscle tightness [Unknown]
  - Parkinsonism [Unknown]
  - Product dose omission issue [Unknown]
  - Illness [Unknown]
  - Drug ineffective [Unknown]
